FAERS Safety Report 5133771-X (Version None)
Quarter: 2006Q4

REPORT INFORMATION
  Report Type: 
  Country: None (occurrence: None)
  Receive Date: 20061018
  Receipt Date: 20061005
  Transmission Date: 20070319
  Serious: Yes (Hospitalization)
  Sender: FDA-Public Use
  Company Number: 2006109339

PATIENT
  Age: 64 Year
  Sex: Male

DRUGS (7)
  1. LYRICA [Suspect]
     Indication: PAIN
     Dosage: 300 MG (150 MG, 2 IN 1 D)
     Dates: start: 20060606
  2. CARBAMAZEPINE [Concomitant]
  3. FOLIC ACID [Concomitant]
  4. CO-CODAMOL (CODEINE PHOSPHATE, PARACETAMOL) [Concomitant]
  5. RANITIDINE [Concomitant]
  6. THIAMINE (THIAMINE) [Concomitant]
  7. CYANOCOBALAMIN [Concomitant]

REACTIONS (3)
  - DRUG INEFFECTIVE [None]
  - INADEQUATE ANALGESIA [None]
  - MOBILITY DECREASED [None]
